FAERS Safety Report 18001857 (Version 1)
Quarter: 2020Q3

REPORT INFORMATION
  Report Type: Spontaneous
  Country: US (occurrence: US)
  Receive Date: 20200709
  Receipt Date: 20200709
  Transmission Date: 20201103
  Serious: No
  Sender: FDA-Public Use
  Company Number: US-ROCHE-2483331

PATIENT

DRUGS (1)
  1. RITUXAN HYCELA [Suspect]
     Active Substance: HYALURONIDASE (HUMAN RECOMBINANT)\RITUXIMAB
     Indication: BREAST CANCER
     Route: 058

REACTIONS (4)
  - Off label use [Unknown]
  - Erythema [Unknown]
  - Intentional product use issue [Unknown]
  - Pain [Unknown]
